FAERS Safety Report 5911359-8 (Version None)
Quarter: 2008Q4

REPORT INFORMATION
  Report Type: 
  Country: None (occurrence: None)
  Receive Date: 20081007
  Receipt Date: 20080925
  Transmission Date: 20090506
  Serious: Yes (Disabling)
  Sender: FDA-Public Use
  Company Number: CO-PFIZER INC-2008054552

PATIENT
  Sex: Female

DRUGS (3)
  1. CHANTIX [Suspect]
     Indication: SMOKING CESSATION THERAPY
     Route: 048
     Dates: start: 20080409, end: 20080101
  2. ALL OTHER THERAPEUTIC PRODUCTS [Concomitant]
  3. LOVASTATIN [Concomitant]

REACTIONS (1)
  - OSTEOARTHRITIS [None]
